FAERS Safety Report 4836690-9 (Version None)
Quarter: 2005Q4

REPORT INFORMATION
  Report Type: 
  Country: None (occurrence: None)
  Receive Date: 20051123
  Receipt Date: 20051115
  Transmission Date: 20060501
  Serious: Yes (Hospitalization, Other)
  Sender: FDA-Public Use
  Company Number: FR-ABBOTT-05P-056-0317331-00

PATIENT
  Age: 69 Year
  Sex: Male

DRUGS (1)
  1. LIPANTHYL TABLET [Suspect]
     Indication: HYPERCHOLESTEROLAEMIA
     Route: 048

REACTIONS (2)
  - TENDON DISORDER [None]
  - TENDONITIS [None]
